FAERS Safety Report 6195182-8 (Version None)
Quarter: 2009Q2

REPORT INFORMATION
  Report Type: 
  Country: None (occurrence: None)
  Receive Date: 20090519
  Receipt Date: 20090508
  Transmission Date: 20091009
  Serious: Yes (Hospitalization, Other)
  Sender: FDA-Public Use
  Company Number: US-MERCK-0605USA00541

PATIENT
  Age: 64 Year
  Sex: Female
  Weight: 73 kg

DRUGS (1)
  1. FOSAMAX [Suspect]
     Indication: OSTEOPOROSIS
     Route: 048
     Dates: start: 20000101, end: 20060301

REACTIONS (25)
  - ABDOMINAL PAIN UPPER [None]
  - BACK PAIN [None]
  - BONE DISORDER [None]
  - DEPRESSION [None]
  - DEVICE RELATED INFECTION [None]
  - FLUID RETENTION [None]
  - GASTROOESOPHAGEAL REFLUX DISEASE [None]
  - HYPERTENSION [None]
  - HYPOTHYROIDISM [None]
  - ILEUS [None]
  - INSOMNIA [None]
  - LOCAL SWELLING [None]
  - NAUSEA [None]
  - ORAL DISORDER [None]
  - OSTEOARTHRITIS [None]
  - OSTEOMYELITIS [None]
  - OSTEONECROSIS [None]
  - OSTEOPENIA [None]
  - OSTEOPOROTIC FRACTURE [None]
  - PAIN [None]
  - PAIN IN EXTREMITY [None]
  - PIRIFORMIS SYNDROME [None]
  - POLYARTHRITIS [None]
  - REFLUX OESOPHAGITIS [None]
  - VOMITING [None]
